FAERS Safety Report 23265425 (Version 1)
Quarter: 2023Q4

REPORT INFORMATION
  Report Type: Spontaneous
  Country: GB (occurrence: GB)
  Receive Date: 20231206
  Receipt Date: 20231206
  Transmission Date: 20240109
  Serious: Yes (Disabling)
  Sender: FDA-Public Use
  Company Number: GB-SANDOZ-SDZ2023GB063845

PATIENT
  Age: 60 Year
  Sex: Female
  Weight: 54 kg

DRUGS (1)
  1. CLARITHROMYCIN [Suspect]
     Active Substance: CLARITHROMYCIN
     Indication: Adverse drug reaction
     Dosage: 500 MG TABLET EVERY 12HRS
     Route: 065
     Dates: start: 20231121, end: 20231126

REACTIONS (12)
  - Medication error [Unknown]
  - Abdominal pain lower [Recovered/Resolved]
  - Insomnia [Recovered/Resolved with Sequelae]
  - Headache [Recovered/Resolved with Sequelae]
  - Dysgeusia [Recovered/Resolved with Sequelae]
  - Ageusia [Not Recovered/Not Resolved]
  - Deafness [Recovering/Resolving]
  - Chills [Recovered/Resolved]
  - Muscle spasms [Recovered/Resolved]
  - Rash [Recovered/Resolved]
  - Constipation [Recovering/Resolving]
  - Urticaria [Not Recovered/Not Resolved]

NARRATIVE: CASE EVENT DATE: 20231121
